FAERS Safety Report 9168157 (Version 2)
Quarter: 2013Q2

REPORT INFORMATION
  Report Type: Spontaneous
  Country: US (occurrence: US)
  Receive Date: 20130318
  Receipt Date: 20130411
  Transmission Date: 20140414
  Serious: Yes (Hospitalization, Other)
  Sender: FDA-Public Use
  Company Number: US-ROXANE LABORATORIES, INC.-2013-RO-00373RO

PATIENT
  Sex: Female

DRUGS (18)
  1. OXCARBAZEPINE [Suspect]
     Indication: CONVULSION
     Dosage: 600 MG
     Route: 048
     Dates: start: 201106
  2. SINGULAIR [Concomitant]
  3. PROVIGIL [Concomitant]
  4. TOPROL XL [Concomitant]
  5. TRILEPTAL [Concomitant]
  6. XANAX [Concomitant]
  7. LORATADINE [Concomitant]
  8. ASPIRIN [Concomitant]
     Dosage: 325 MG
  9. CELEXA [Concomitant]
  10. MOBIC [Concomitant]
  11. COZAAR [Concomitant]
  12. BACTRIM [Concomitant]
  13. PRILOSEC [Concomitant]
  14. POTASSIUM [Concomitant]
  15. DIURETIC [Concomitant]
  16. SIMVASTATIN [Concomitant]
  17. LOMOTIL [Concomitant]
  18. BACLOFEN [Concomitant]

REACTIONS (4)
  - Convulsion [Recovered/Resolved]
  - Drug ineffective [Recovered/Resolved]
  - Drug level below therapeutic [Unknown]
  - Product quality issue [Unknown]
